FAERS Safety Report 10260978 (Version 1)
Quarter: 2014Q2

REPORT INFORMATION
  Report Type: Spontaneous
  Country: US (occurrence: US)
  Receive Date: 20140626
  Receipt Date: 20140626
  Transmission Date: 20141212
  Serious: No
  Sender: FDA-Public Use
  Company Number: US-PFIZER INC-2014169465

PATIENT
  Age: 26 Year
  Sex: Female
  Weight: 68.03 kg

DRUGS (1)
  1. ADVIL PM [Suspect]
     Indication: BACK PAIN
     Dosage: 200 MG, DAILY
     Dates: start: 201406, end: 20140618

REACTIONS (2)
  - Drug ineffective [Unknown]
  - Expired product administered [Unknown]
